FAERS Safety Report 9995606 (Version 1)
Quarter: 2014Q1

REPORT INFORMATION
  Report Type: Spontaneous
  Country: TW (occurrence: TW)
  Receive Date: 20140311
  Receipt Date: 20140311
  Transmission Date: 20141002
  Serious: Yes (Death)
  Sender: FDA-Public Use
  Company Number: TW-SA-2014SA025395

PATIENT
  Age: 50 Year
  Sex: Female

DRUGS (3)
  1. TAXOTERE [Suspect]
     Indication: CHEMOTHERAPY
     Route: 041
     Dates: start: 20140210
  2. GRANULOCYTE COLONY-STIMULATING FACTOR NOS [Concomitant]
  3. MAXIPIME [Concomitant]

REACTIONS (10)
  - Febrile neutropenia [Fatal]
  - Malaise [Fatal]
  - Diarrhoea [Fatal]
  - Shock [Fatal]
  - Thrombocytopenia [Fatal]
  - Metabolic acidosis [Fatal]
  - Cardiac arrest [Fatal]
  - Pneumonia [Fatal]
  - Productive cough [Fatal]
  - Dyspnoea [Fatal]
